FAERS Safety Report 6745764-7 (Version None)
Quarter: 2010Q2

REPORT INFORMATION
  Report Type: 
  Country: None (occurrence: None)
  Receive Date: 20100528
  Receipt Date: 20100518
  Transmission Date: 20101027
  Serious: Yes (Death, Other)
  Sender: FDA-Public Use
  Company Number: PHHY2010JP00822

PATIENT
  Sex: Male
  Weight: 68 kg

DRUGS (10)
  1. ICL670A ICL+DISTAB [Suspect]
     Indication: IRON OVERLOAD
     Dosage: 500 MG/DAY
     Route: 048
     Dates: start: 20090909, end: 20090917
  2. ICL670A ICL+DISTAB [Suspect]
     Indication: APLASTIC ANAEMIA
     Dosage: 1000 MG/DAY
     Route: 048
     Dates: start: 20090918
  3. CYTARABINE [Suspect]
     Dosage: UNK
     Route: 042
     Dates: start: 20091001, end: 20091003
  4. LEVOFLOXACIN [Concomitant]
     Indication: INFECTION PROPHYLAXIS
     Dosage: 500 MG
     Route: 048
     Dates: start: 20090909
  5. SULFAMETHOXAZOLE AND TRIMETHOPRIM [Concomitant]
     Indication: INFECTION PROPHYLAXIS
     Dosage: 480 MG, UNK
     Route: 048
     Dates: start: 20090909
  6. ITRIZOLE [Concomitant]
     Indication: INFECTION PROPHYLAXIS
     Dosage: 20 ML, UNK
     Route: 048
     Dates: start: 20090909
  7. RED BLOOD CELLS, LEUCOCYTE DEPLETED [Concomitant]
     Dosage: 2 U, EVERY WEEKS
     Dates: start: 20080904
  8. CARBAZOCHROME [Concomitant]
     Indication: INFECTION PROPHYLAXIS
     Dosage: 90 MG, UNK
     Route: 048
     Dates: start: 20090909
  9. FLUOROMETHOLONE [Concomitant]
     Indication: APLASTIC ANAEMIA
     Dosage: UNK
     Route: 048
     Dates: start: 20090930
  10. CHEMOTHERAPEUTICS NOS [Concomitant]

REACTIONS (7)
  - BLOOD BILIRUBIN INCREASED [None]
  - BLOOD UREA INCREASED [None]
  - CELLULITIS ORBITAL [None]
  - DEATH [None]
  - EYELID DISORDER [None]
  - LEUKAEMIA [None]
  - MALIGNANT NEOPLASM PROGRESSION [None]
